FAERS Safety Report 19711740 (Version 3)
Quarter: 2021Q3

REPORT INFORMATION
  Report Type: Spontaneous
  Country: IE (occurrence: IE)
  Receive Date: 20210817
  Receipt Date: 20210923
  Transmission Date: 20211014
  Serious: Yes (Other)
  Sender: FDA-Public Use
  Company Number: IE-MYLANLABS-2021M1051547

PATIENT
  Age: 5 Year
  Sex: Male

DRUGS (16)
  1. MERCAPTOPURINE. [Suspect]
     Active Substance: MERCAPTOPURINE
     Indication: B PRECURSOR TYPE ACUTE LEUKAEMIA
  2. PEGASPARGASE [Suspect]
     Active Substance: PEGASPARGASE
     Indication: B PRECURSOR TYPE ACUTE LEUKAEMIA
  3. DEXAMETHASONE. [Suspect]
     Active Substance: DEXAMETHASONE
     Indication: B PRECURSOR TYPE ACUTE LEUKAEMIA
  4. METHOTREXATE. [Suspect]
     Active Substance: METHOTREXATE
     Indication: ACUTE LYMPHOCYTIC LEUKAEMIA
     Dosage: UNK (UKALL 2011 PROTOCOL REGIMEN A)
     Route: 065
     Dates: start: 2013, end: 2016
  5. DEXAMETHASONE. [Suspect]
     Active Substance: DEXAMETHASONE
     Indication: ACUTE LYMPHOCYTIC LEUKAEMIA
     Dosage: UNK (UKALL 2011 PROTOCOL REGIMEN A)
     Route: 065
     Dates: start: 2013, end: 2016
  6. VINCRISTINE [Suspect]
     Active Substance: VINCRISTINE
     Indication: ACUTE LYMPHOCYTIC LEUKAEMIA
     Dosage: UNK (UKALL 2011 PROTOCOL REGIMEN A)
     Route: 065
     Dates: start: 2013, end: 2016
  7. ENDOXANA [Suspect]
     Active Substance: CYCLOPHOSPHAMIDE
     Indication: ACUTE LYMPHOCYTIC LEUKAEMIA
     Dosage: UNK (UKALL 2011 PROTOCOL REGIMEN A)
     Route: 065
     Dates: start: 2013, end: 2016
  8. ENDOXANA [Suspect]
     Active Substance: CYCLOPHOSPHAMIDE
     Indication: B PRECURSOR TYPE ACUTE LEUKAEMIA
  9. DOXORUBICIN [Suspect]
     Active Substance: DOXORUBICIN
     Indication: B PRECURSOR TYPE ACUTE LEUKAEMIA
     Dosage: UKALL 2011 PROTOCOL REGIMEN A
     Dates: start: 2013, end: 2016
  10. METHOTREXATE. [Suspect]
     Active Substance: METHOTREXATE
     Indication: B PRECURSOR TYPE ACUTE LEUKAEMIA
  11. MERCAPTOPURINE. [Suspect]
     Active Substance: MERCAPTOPURINE
     Indication: ACUTE LYMPHOCYTIC LEUKAEMIA
     Dosage: UNK (UKALL 2011 PROTOCOL REGIMEN A)
     Route: 065
     Dates: start: 2013, end: 2016
  12. DOXIL                              /00055703/ [Suspect]
     Active Substance: DOXYCYCLINE HYDROCHLORIDE
     Indication: ACUTE LYMPHOCYTIC LEUKAEMIA
     Dosage: UNK (UKALL 2011 PROTOCOL REGIMEN A)
     Route: 065
     Dates: start: 2013, end: 2016
  13. CYTARABINE. [Suspect]
     Active Substance: CYTARABINE
     Indication: ACUTE LYMPHOCYTIC LEUKAEMIA
     Dosage: UNK (UKALL 2011 PROTOCOL REGIMEN A)
     Route: 065
     Dates: start: 2013, end: 2016
  14. CYTARABINE. [Suspect]
     Active Substance: CYTARABINE
     Indication: B PRECURSOR TYPE ACUTE LEUKAEMIA
  15. VINCRISTINE [Suspect]
     Active Substance: VINCRISTINE
     Indication: B PRECURSOR TYPE ACUTE LEUKAEMIA
  16. PEGASPARGASE [Suspect]
     Active Substance: PEGASPARGASE
     Indication: ACUTE LYMPHOCYTIC LEUKAEMIA
     Dosage: UNK (UKALL 2011 PROTOCOL REGIMEN A)
     Route: 065
     Dates: start: 2013, end: 2016

REACTIONS (3)
  - Multiple lentigines syndrome [Unknown]
  - Lentigo [Unknown]
  - Rash [Unknown]

NARRATIVE: CASE EVENT DATE: 2016
